FAERS Safety Report 9410958 (Version 4)
Quarter: 2013Q4

REPORT INFORMATION
  Report Type: Spontaneous
  Country: CH (occurrence: CH)
  Receive Date: 20130719
  Receipt Date: 20131018
  Transmission Date: 20140711
  Serious: Yes (Other)
  Sender: FDA-Public Use
  Company Number: CH-BAXTER-2013BAX027509

PATIENT
  Sex: Male

DRUGS (2)
  1. KIOVIG 1G/10ML [Suspect]
     Indication: IMMUNODEFICIENCY COMMON VARIABLE
     Route: 042
  2. KIOVIG 1G/10ML [Suspect]
     Indication: SECONDARY IMMUNODEFICIENCY

REACTIONS (1)
  - Renal failure [Recovered/Resolved]
